FAERS Safety Report 10310682 (Version 1)
Quarter: 2014Q3

REPORT INFORMATION
  Report Type: Spontaneous
  Country: US (occurrence: None)
  Receive Date: 20140716
  Receipt Date: 20140716
  Transmission Date: 20150326
  Serious: Yes (Other)
  Sender: FDA-Public Use
  Company Number: None

PATIENT
  Age: 45 Year
  Sex: Male

DRUGS (3)
  1. HEPARIN [Concomitant]
     Active Substance: HEPARIN SODIUM
  2. SALINE FLUSHES [Concomitant]
  3. NAFCILLIN [Suspect]
     Active Substance: NAFCILLIN\NAFCILLIN SODIUM
     Indication: STAPHYLOCOCCAL INFECTION
     Route: 042
     Dates: start: 20140613, end: 20140715

REACTIONS (2)
  - Rash generalised [None]
  - Rash [None]

NARRATIVE: CASE EVENT DATE: 20140709
